FAERS Safety Report 12990969 (Version 1)
Quarter: 2016Q4

REPORT INFORMATION
  Report Type: Spontaneous
  Country: US (occurrence: US)
  Receive Date: 20161201
  Receipt Date: 20161201
  Transmission Date: 20170207
  Serious: No
  Sender: FDA-Public Use
  Company Number: ALCN2016US008107

PATIENT
  Age: 60 Year
  Sex: Female

DRUGS (3)
  1. ILEVRO [Concomitant]
     Active Substance: NEPAFENAC
     Indication: POSTOPERATIVE CARE
     Route: 047
  2. DUREZOL [Suspect]
     Active Substance: DIFLUPREDNATE
     Indication: POSTOPERATIVE CARE
     Dosage: 4 GTT, QID
     Route: 047
     Dates: start: 20161102, end: 20161117
  3. OFLOX [Concomitant]
     Indication: POSTOPERATIVE CARE
     Route: 047

REACTIONS (1)
  - Iritis [Unknown]

NARRATIVE: CASE EVENT DATE: 20161117
